FAERS Safety Report 19322801 (Version 1)
Quarter: 2021Q2

REPORT INFORMATION
  Report Type: Spontaneous
  Country: CA (occurrence: CA)
  Receive Date: 20210527
  Receipt Date: 20210527
  Transmission Date: 20210717
  Serious: Yes (Disabling, Other)
  Sender: FDA-Public Use
  Company Number: CA-EMCURE PHARMACEUTICALS LTD-2021-EPL-001614

PATIENT
  Age: 15 Year
  Sex: Male
  Weight: 81 kg

DRUGS (2)
  1. CLONIDINE. [Concomitant]
     Active Substance: CLONIDINE
  2. RISPERIDONE. [Suspect]
     Active Substance: RISPERIDONE
     Indication: PRODUCT USED FOR UNKNOWN INDICATION
     Dosage: 1.5 MILLIGRAM, 2 EVERY 1 DAYS
     Route: 048

REACTIONS (2)
  - Aggression [Recovered/Resolved]
  - Intentional self-injury [Recovered/Resolved]
